FAERS Safety Report 18949595 (Version 1)
Quarter: 2021Q1

REPORT INFORMATION
  Report Type: Spontaneous
  Country: US (occurrence: US)
  Receive Date: 20210227
  Receipt Date: 20210227
  Transmission Date: 20210420
  Serious: No
  Sender: FDA-Public Use
  Company Number: US-ROCHE-2600888

PATIENT
  Sex: Male

DRUGS (12)
  1. PREDNISOLONE. [Concomitant]
     Active Substance: PREDNISOLONE
  2. AZOPT [Concomitant]
     Active Substance: BRINZOLAMIDE
  3. DILTIAZEM ER [Concomitant]
     Active Substance: DILTIAZEM
  4. FINASTERIDE. [Concomitant]
     Active Substance: FINASTERIDE
  5. HYDROCORTISONE. [Concomitant]
     Active Substance: HYDROCORTISONE
  6. HYDROXYZINE [Concomitant]
     Active Substance: HYDROXYZINE HYDROCHLORIDE
  7. TAMSULOSIN [Concomitant]
     Active Substance: TAMSULOSIN
  8. TRIAMCINOLONE [Concomitant]
     Active Substance: TRIAMCINOLONE
  9. DORZOLAMIDE [Concomitant]
     Active Substance: DORZOLAMIDE
  10. TRAVATAN [Concomitant]
     Active Substance: TRAVOPROST
  11. MONTELUKAST SODIUM. [Concomitant]
     Active Substance: MONTELUKAST SODIUM
  12. XOLAIR [Suspect]
     Active Substance: OMALIZUMAB
     Indication: ASTHMA
     Dosage: 150 ML VIAL
     Route: 058

REACTIONS (1)
  - Rash [Unknown]
